FAERS Safety Report 6083988-5 (Version None)
Quarter: 2009Q1

REPORT INFORMATION
  Report Type: 
  Country: None (occurrence: None)
  Receive Date: 20090219
  Receipt Date: 20090206
  Transmission Date: 20090719
  Serious: Yes (Death)
  Sender: FDA-Public Use
  Company Number: CZ-ELI_LILLY_AND_COMPANY-CZ200902001593

PATIENT
  Age: 70 Year
  Sex: Male

DRUGS (3)
  1. ZYPREXA [Suspect]
     Indication: DELUSIONAL DISORDER, UNSPECIFIED TYPE
     Dosage: 10 MG, 2/D
     Route: 048
     Dates: start: 20081205, end: 20081211
  2. ZYPREXA [Suspect]
     Dosage: 10 MG, 2/D
     Route: 048
     Dates: start: 20081212
  3. MIRTAZAPINE [Concomitant]
     Indication: DEPRESSION
     Route: 048

REACTIONS (1)
  - COMPLETED SUICIDE [None]
